FAERS Safety Report 7452113-8 (Version None)
Quarter: 2011Q2

REPORT INFORMATION
  Report Type: 
  Country: None (occurrence: None)
  Receive Date: 20110502
  Receipt Date: 20110502
  Transmission Date: 20111010
  Serious: Yes (Death)
  Sender: FDA-Public Use
  Company Number: US-PFIZER INC-2011069704

PATIENT
  Sex: Male

DRUGS (1)
  1. NEUMEGA [Suspect]
     Indication: BILE DUCT CANCER
     Dosage: 2.9 MG, WEEKLY
     Route: 042

REACTIONS (2)
  - DISEASE PROGRESSION [None]
  - BILE DUCT CANCER [None]
